FAERS Safety Report 13693086 (Version 1)
Quarter: 2017Q2

REPORT INFORMATION
  Report Type: Spontaneous
  Country: US (occurrence: US)
  Receive Date: 20170626
  Receipt Date: 20170626
  Transmission Date: 20170830
  Serious: Yes (Hospitalization)
  Sender: FDA-Public Use
  Company Number: None

PATIENT
  Age: 52 Year
  Sex: Female

DRUGS (11)
  1. IBRANCE [Suspect]
     Active Substance: PALBOCICLIB
     Indication: NEOPLASM MALIGNANT
     Route: 048
     Dates: start: 20161006
  2. VITAMIN D3 [Concomitant]
     Active Substance: CHOLECALCIFEROL
  3. BLACK COHOSH CAP [Concomitant]
  4. GINKOBA [Concomitant]
     Active Substance: GINKGO
  5. ALOE VERA GEL [Concomitant]
     Active Substance: ALOE VERA LEAF
  6. VITAMIN C [Concomitant]
     Active Substance: ASCORBIC ACID
  7. MELATONIN [Concomitant]
     Active Substance: MELATONIN
  8. FISH OIL [Concomitant]
     Active Substance: FISH OIL
  9. LETROZOLE. [Concomitant]
     Active Substance: LETROZOLE
  10. TUMERIC CAP [Concomitant]
  11. VIT A [Concomitant]

REACTIONS (2)
  - Alopecia [None]
  - Surgery [None]
